FAERS Safety Report 7358766-7 (Version None)
Quarter: 2011Q1

REPORT INFORMATION
  Report Type: 
  Country: None (occurrence: None)
  Receive Date: 20110317
  Receipt Date: 20110311
  Transmission Date: 20110831
  Serious: Yes (Other)
  Sender: FDA-Public Use
  Company Number: A0917805A

PATIENT
  Age: 22 Year
  Sex: Female

DRUGS (5)
  1. MIGRAINE MEDICATION [Concomitant]
  2. NEBULIZER [Concomitant]
  3. THYROID MEDICATION [Concomitant]
  4. ADVAIR DISKUS 100/50 [Suspect]
     Indication: ASTHMA
     Dosage: 2PUFF TWICE PER DAY
     Route: 055
  5. PROVENTIL [Concomitant]

REACTIONS (4)
  - OVERDOSE [None]
  - ASTHMA [None]
  - DRUG ADMINISTRATION ERROR [None]
  - DRUG INEFFECTIVE [None]
